FAERS Safety Report 7306569-1 (Version None)
Quarter: 2011Q1

REPORT INFORMATION
  Report Type: 
  Country: None (occurrence: None)
  Receive Date: 20110119
  Receipt Date: 20100729
  Transmission Date: 20110831
  Serious: No
  Sender: FDA-Public Use
  Company Number: A-NJ2010-38540

PATIENT
  Age: 73 Year
  Sex: Female
  Weight: 59.9 kg

DRUGS (20)
  1. FUROSEMIDE [Concomitant]
  2. ASPIRIN [Concomitant]
  3. ALBUTEROL SULFATE [Concomitant]
  4. HYDROCODONE W/APAP (HYDROCODONE, PARACETAMOL) [Concomitant]
  5. AMILORIDE HYDROCHLORIDE [Concomitant]
  6. CRESTOR [Concomitant]
  7. OEMGA 3 (FISH OIL) [Concomitant]
  8. SPIRIVA [Concomitant]
  9. LUNESTA [Concomitant]
  10. ALODIPINE BESYLATE (AMLODIPINE BESILATE) [Concomitant]
  11. LEVOTHROID [Concomitant]
  12. TRAZODONE (TRAZODONE) [Concomitant]
  13. COZAAR [Concomitant]
  14. PLAVIX [Concomitant]
  15. GLUCOPHAGE [Concomitant]
  16. OXYGEN (OXYGEN) [Concomitant]
  17. VITAMIN D [Concomitant]
  18. TRACLEER [Suspect]
     Indication: PULMONARY ARTERIAL HYPERTENSION
     Dosage: 125 MG, BID, ORAL, 62.5 MG, BID, ORAL
     Route: 048
     Dates: start: 20100515, end: 20100715
  19. TRACLEER [Suspect]
     Indication: PULMONARY ARTERIAL HYPERTENSION
     Dosage: 125 MG, BID, ORAL, 62.5 MG, BID, ORAL
     Route: 048
     Dates: start: 20100414, end: 20100514
  20. MULTIVITAMIN [Concomitant]

REACTIONS (4)
  - LIVER FUNCTION TEST ABNORMAL [None]
  - BLOOD ALKALINE PHOSPHATASE INCREASED [None]
  - ALANINE AMINOTRANSFERASE INCREASED [None]
  - ASPARTATE AMINOTRANSFERASE INCREASED [None]
